FAERS Safety Report 7989458-9 (Version None)
Quarter: 2011Q4

REPORT INFORMATION
  Report Type: 
  Country: None (occurrence: None)
  Receive Date: 20111219
  Receipt Date: 20110325
  Transmission Date: 20120403
  Serious: No
  Sender: FDA-Public Use
  Company Number: US-PFIZER INC-K201100340

PATIENT
  Sex: Male

DRUGS (1)
  1. SILVADENE [Suspect]
     Dosage: UNK
     Route: 061

REACTIONS (1)
  - DRUG EFFECT DECREASED [None]
